FAERS Safety Report 8850583 (Version 2)
Quarter: 2013Q1

REPORT INFORMATION
  Report Type: Report from Study
  Country: FR (occurrence: FR)
  Receive Date: 20121019
  Receipt Date: 20130312
  Transmission Date: 20140127
  Serious: Yes (Hospitalization, Other)
  Sender: FDA-Public Use
  Company Number: FR-BAXTER-2012BAX019755

PATIENT
  Age: 14 Year
  Sex: Male
  Weight: 33.3 kg

DRUGS (17)
  1. HOLOXAN [Suspect]
     Indication: SARCOMA
     Route: 042
     Dates: start: 20090729
  2. HOLOXAN [Suspect]
     Route: 042
     Dates: start: 20090910
  3. VINCRISTINE [Suspect]
     Indication: SARCOMA
     Route: 042
     Dates: start: 20090725
  4. VINCRISTINE [Suspect]
     Route: 042
     Dates: start: 20090909
  5. VINCRISTINE [Suspect]
     Route: 042
  6. ACTINOMYCIN D [Suspect]
     Indication: SARCOMA
     Route: 042
     Dates: start: 20090729
  7. ACTINOMYCIN D [Suspect]
     Route: 042
     Dates: start: 20090909
  8. ACTINOMYCIN D [Suspect]
     Route: 042
     Dates: start: 20090819
  9. DOXORUBICIN [Suspect]
     Indication: SARCOMA
     Route: 042
     Dates: start: 20090729
  10. DOXORUBICIN [Suspect]
     Route: 042
     Dates: start: 20090910
  11. DOXORUBICIN [Suspect]
     Route: 042
     Dates: start: 20090821
  12. NEURONTIN [Concomitant]
     Indication: PRODUCT USED FOR UNKNOWN INDICATION
     Route: 065
     Dates: start: 20090729
  13. LAROXYL [Concomitant]
     Indication: PRODUCT USED FOR UNKNOWN INDICATION
     Dosage: 15 MG
     Route: 065
     Dates: start: 20090729
  14. ORAMORPH [Concomitant]
     Indication: PRODUCT USED FOR UNKNOWN INDICATION
     Dosage: 4-16 DROPS
     Route: 065
     Dates: start: 20090819, end: 20090930
  15. EMEND [Concomitant]
     Indication: PRODUCT USED FOR UNKNOWN INDICATION
     Dosage: 30-125 MG
     Route: 065
     Dates: start: 20090820, end: 20090911
  16. DURAGESIC [Concomitant]
     Indication: PRODUCT USED FOR UNKNOWN INDICATION
     Dosage: 1.2 MG
     Route: 065
     Dates: start: 20090912, end: 20090930
  17. ENTEROL [Concomitant]
     Indication: PRODUCT USED FOR UNKNOWN INDICATION
     Dosage: 2200 CALORIES
     Route: 065
     Dates: start: 20090916

REACTIONS (3)
  - Gastroenteritis bacterial [Recovered/Resolved]
  - Device related infection [Recovered/Resolved]
  - Febrile bone marrow aplasia [Recovered/Resolved]
